FAERS Safety Report 8612824-5 (Version None)
Quarter: 2012Q3

REPORT INFORMATION
  Report Type: 
  Country: None (occurrence: None)
  Receive Date: 20120822
  Receipt Date: 20120308
  Transmission Date: 20120928
  Serious: No
  Sender: FDA-Public Use
  Company Number: US-ASTRAZENECA-2010SE55022

PATIENT
  Age: 87 Year
  Sex: Female
  Weight: 71.2 kg

DRUGS (13)
  1. SYMBICORT [Suspect]
     Indication: PNEUMONIA
     Dosage: 160/4.5 MCG 2 PUFFS BID
     Route: 055
  2. SYMBICORT [Suspect]
     Dosage: 160/4.5 MCG 2 PUFFS DAILY
     Route: 055
     Dates: start: 20100201
  3. HEART PILL [Concomitant]
  4. SYMBICORT [Suspect]
     Indication: BRONCHITIS
     Dosage: 160/4.5 MCG 2 PUFFS BID
     Route: 055
  5. SYMBICORT [Suspect]
     Indication: ASTHMA
     Dosage: 160/4.5 MCG 2 PUFFS BID
     Route: 055
  6. SYMBICORT [Suspect]
     Dosage: 160/4.5 MCG 2 PUFFS DAILY
     Route: 055
     Dates: start: 20100201
  7. SYMBICORT [Suspect]
     Indication: CHRONIC OBSTRUCTIVE PULMONARY DISEASE
     Dosage: 160/4.5 MCG 2 PUFFS BID
     Route: 055
  8. SYMBICORT [Suspect]
     Dosage: 160/4.5 MCG 2 PUFFS DAILY
     Route: 055
     Dates: start: 20100201
  9. WATER PILL [Concomitant]
  10. NORVASC [Concomitant]
  11. LISINOPRIL [Concomitant]
  12. SYMBICORT [Suspect]
     Dosage: 160/4.5 MCG 2 PUFFS DAILY
     Route: 055
     Dates: start: 20100201
  13. METOPROLOL TARTRATE [Concomitant]

REACTIONS (5)
  - DYSPHONIA [None]
  - VISION BLURRED [None]
  - OROPHARYNGEAL PAIN [None]
  - BRONCHITIS [None]
  - OFF LABEL USE [None]
